FAERS Safety Report 19171114 (Version 2)
Quarter: 2021Q2

REPORT INFORMATION
  Report Type: Report from Study
  Country: US (occurrence: US)
  Receive Date: 20210422
  Receipt Date: 20210526
  Transmission Date: 20210717
  Serious: Yes (Hospitalization, Other)
  Sender: FDA-Public Use
  Company Number: US-CELLTRION INC.-2021US003644

PATIENT

DRUGS (8)
  1. TOZINAMERAN. [Suspect]
     Active Substance: TOZINAMERAN
     Indication: COVID-19 IMMUNISATION
     Dosage: SINGLE DOSE
     Route: 065
     Dates: start: 20210222, end: 20210222
  2. TOZINAMERAN. [Suspect]
     Active Substance: TOZINAMERAN
     Indication: IMMUNISATION
     Dosage: 2 DOSES IN Q1 2021
     Dates: start: 202102
  3. INFLECTRA [Suspect]
     Active Substance: INFLIXIMAB-DYYB
     Dosage: 600 MG EVERY 5?6 WEEKS (START DATE: 2021)
     Route: 065
     Dates: start: 20210225
  4. TYLENOL [Concomitant]
     Active Substance: ACETAMINOPHEN
     Dosage: 1 G GIVEN BEFORE INFUSION
  5. COVID?19 VACCINE NOS. [Suspect]
     Active Substance: COVID-19 VACCINE NOS
     Dosage: UNK, DOSE 2
     Dates: start: 20210315
  6. COVID?19 VACCINE NOS. [Suspect]
     Active Substance: COVID-19 VACCINE NOS
     Indication: COVID-19
     Dosage: UNK, DOSE 1
     Dates: start: 20210222
  7. BENADRYL [Concomitant]
     Active Substance: DIPHENHYDRAMINE HYDROCHLORIDE
     Dosage: 25 MG GIVEN BEFORE INFUSION
  8. INFLECTRA [Suspect]
     Active Substance: INFLIXIMAB-DYYB
     Indication: CROHN^S DISEASE
     Dosage: BI?MONTHLY FOR OVER A DECADE
     Dates: start: 20210225

REACTIONS (8)
  - Feeling abnormal [Unknown]
  - Unevaluable event [Unknown]
  - Malaise [Unknown]
  - Product use issue [Unknown]
  - Crohn^s disease [Unknown]
  - Off label use [Unknown]
  - Overdose [Unknown]
  - Pain [Unknown]

NARRATIVE: CASE EVENT DATE: 2018
